FAERS Safety Report 11463696 (Version 1)
Quarter: 2015Q3

REPORT INFORMATION
  Report Type: Spontaneous
  Country: US (occurrence: US)
  Receive Date: 20150831
  Receipt Date: 20150831
  Transmission Date: 20151125
  Serious: No
  Sender: FDA-Public Use
  Company Number: US-ELI_LILLY_AND_COMPANY-US201104003275

PATIENT
  Age: 61 Year
  Sex: Female

DRUGS (1)
  1. CYMBALTA [Suspect]
     Active Substance: DULOXETINE HYDROCHLORIDE
     Indication: DEPRESSION
     Dosage: 90 MG, QD

REACTIONS (6)
  - Emotional distress [Unknown]
  - Fear [Unknown]
  - Anxiety [Unknown]
  - Drug dispensing error [Recovered/Resolved]
  - Dyspnoea [Unknown]
  - Crying [Unknown]
